FAERS Safety Report 7200655-2 (Version None)
Quarter: 2010Q4

REPORT INFORMATION
  Report Type: 
  Country: None (occurrence: None)
  Receive Date: 20101228
  Receipt Date: 20101222
  Transmission Date: 20110411
  Serious: Yes (Hospitalization)
  Sender: FDA-Public Use
  Company Number: IT-PFIZER INC-2010178941

PATIENT
  Age: 72 Year
  Sex: Male

DRUGS (3)
  1. SUNITINIB MALATE [Suspect]
     Indication: RENAL CANCER
     Dosage: 50 MG, 1X/DAY
     Route: 048
     Dates: start: 20091112, end: 20101206
  2. TAMSULOSIN HYDROCHLORIDE [Concomitant]
     Route: 048
  3. EUTIROX [Concomitant]
     Dosage: 25 UG, UNK
     Route: 065

REACTIONS (2)
  - ACUTE CORONARY SYNDROME [None]
  - HYPERTENSIVE CRISIS [None]
